FAERS Safety Report 11173936 (Version 3)
Quarter: 2016Q2

REPORT INFORMATION
  Report Type: Spontaneous
  Country: US (occurrence: US)
  Receive Date: 20150609
  Receipt Date: 20160620
  Transmission Date: 20160815
  Serious: Yes (Life-Threatening, Hospitalization)
  Sender: FDA-Public Use
  Company Number: US-BAYER-2015-314545

PATIENT
  Age: 33 Year
  Sex: Female
  Weight: 77.98 kg

DRUGS (6)
  1. LACTOBACILLUS ACIDOPHILUS [Concomitant]
     Active Substance: LACTOBACILLUS ACIDOPHILUS
     Dosage: 1 DAILY
     Route: 048
  2. EXCEDRIN MIGRAINE [Concomitant]
     Active Substance: ACETAMINOPHEN\ASPIRIN\CAFFEINE
     Indication: MIGRAINE
     Dosage: 250 MG, EVERY 6 HRS
     Route: 048
  3. MIRENA [Suspect]
     Active Substance: LEVONORGESTREL
     Indication: CONTRACEPTION
     Dosage: 20 MCG/24HR, CONT
     Route: 015
     Dates: start: 20080328, end: 20130807
  4. IMITREX [Concomitant]
     Active Substance: SUMATRIPTAN SUCCINATE
     Dosage: 100 MG, UNK
     Route: 048
     Dates: start: 2000
  5. AMBIEN [Concomitant]
     Active Substance: ZOLPIDEM TARTRATE
     Indication: SLEEP DISORDER THERAPY
     Dosage: 5 MG, AT BEDTIME PRN
     Route: 048
  6. MOTRIN [Concomitant]
     Active Substance: IBUPROFEN
     Indication: MUSCLE SPASMS
     Dosage: 200 MG, EVERY 6 HRS AS PER NEEDED
     Route: 048

REACTIONS (7)
  - Device use error [None]
  - Abdominal pain [None]
  - Injury [None]
  - Uterine perforation [None]
  - General physical health deterioration [None]
  - Infection [None]
  - Device issue [None]

NARRATIVE: CASE EVENT DATE: 20080328
